FAERS Safety Report 8401995-1 (Version None)
Quarter: 2012Q2

REPORT INFORMATION
  Report Type: 
  Country: None (occurrence: None)
  Receive Date: 20120601
  Receipt Date: 20120528
  Transmission Date: 20120825
  Serious: Yes (Other)
  Sender: FDA-Public Use
  Company Number: IT-PFIZER INC-2012128537

PATIENT
  Age: 80 Year
  Sex: Female

DRUGS (4)
  1. CARDURA [Suspect]
     Indication: HYPERTENSION
     Dosage: 1 MG, DAILY
     Route: 048
     Dates: start: 20120502, end: 20120514
  2. ASPIRIN [Concomitant]
     Dosage: UNK
  3. PANTOPRAZOLE SODIUM [Concomitant]
     Dosage: 20 MG, UNK
  4. ZOPRAZIDE [Concomitant]
     Dosage: UNK

REACTIONS (2)
  - DIPLOPIA [None]
  - HALLUCINATION, AUDITORY [None]
